FAERS Safety Report 8878857 (Version 1)
Quarter: 2012Q4

REPORT INFORMATION
  Report Type: 
  Country: DE (occurrence: DE)
  Receive Date: 20121026
  Receipt Date: 20121026
  Transmission Date: 20130627
  Serious: Yes (Hospitalization, Other)
  Sender: FDA-Public Use
  Company Number: DE-MYLANLABS-2012S1022256

PATIENT
  Age: 31 Year
  Sex: Female

DRUGS (6)
  1. METFORMIN [Suspect]
     Indication: TYPE 2 DIABETES MELLITUS
     Dosage: dosage unknown
     Route: 048
     Dates: start: 20090709, end: 20100126
  2. RAMIPRIL [Suspect]
     Indication: HYPERTENSION
     Dosage: dosage unknown
     Route: 048
     Dates: start: 20090709, end: 20100126
  3. METOPROLOL [Concomitant]
     Indication: HYPERTENSION
     Route: 048
     Dates: start: 20090709, end: 20100126
  4. DOPEGYT [Concomitant]
     Indication: HYPERTENSION
     Route: 048
     Dates: start: 20100126, end: 20100210
  5. NOVORAPID [Concomitant]
     Indication: TYPE 2 DIABETES MELLITUS
     Route: 058
     Dates: start: 20100126, end: 20100210
  6. PROTAPHANE [Concomitant]
     Indication: TYPE 2 DIABETES MELLITUS
     Route: 058
     Dates: start: 20100126, end: 20100210

REACTIONS (2)
  - Exposure during pregnancy [Recovered/Resolved]
  - HELLP syndrome [Unknown]
